FAERS Safety Report 17065706 (Version 2)
Quarter: 2020Q4

REPORT INFORMATION
  Report Type: Spontaneous
  Country: US (occurrence: US)
  Receive Date: 20191122
  Receipt Date: 20201215
  Transmission Date: 20210113
  Serious: No
  Sender: FDA-Public Use
  Company Number: US-ENDO PHARMACEUTICALS INC-2019-108808

PATIENT
  Sex: Female

DRUGS (1)
  1. OXYBUTYNIN CHLORIDE. [Suspect]
     Active Substance: OXYBUTYNIN CHLORIDE
     Indication: HYPERTONIC BLADDER
     Dosage: UNK UNKNOWN, BID (ONCE IN THE MORNING AND ONCE IN THE NIGHT)
     Route: 065

REACTIONS (4)
  - Product physical issue [Unknown]
  - Drug ineffective [Not Recovered/Not Resolved]
  - Product lot number issue [Unknown]
  - Impaired quality of life [Unknown]
